FAERS Safety Report 11175969 (Version 3)
Quarter: 2015Q3

REPORT INFORMATION
  Report Type: Spontaneous
  Country: US (occurrence: US)
  Receive Date: 20150609
  Receipt Date: 20150814
  Transmission Date: 20151125
  Serious: Yes (Hospitalization)
  Sender: FDA-Public Use
  Company Number: US-MERCK-1506USA001911

PATIENT
  Age: 5 Year
  Sex: Male
  Weight: 30 kg

DRUGS (13)
  1. LEVETIRACETAM. [Concomitant]
     Active Substance: LEVETIRACETAM
     Dosage: 500 MG, QD
     Route: 048
  2. CHOLECALCIFEROL [Concomitant]
     Active Substance: CHOLECALCIFEROL
     Dosage: 3000 UNITS QD
     Route: 048
  3. INTRON A [Suspect]
     Active Substance: INTERFERON ALFA-2B
     Indication: INTRACRANIAL GERM CELL TUMOUR
     Dosage: UNK, ONCE
     Dates: start: 20130107
  4. ENOXAPARIN SODIUM. [Concomitant]
     Active Substance: ENOXAPARIN SODIUM
     Indication: THROMBOSIS
     Dosage: 30 MG, QD
     Route: 058
  5. AMLODIPINE [Concomitant]
     Active Substance: AMLODIPINE BESYLATE
     Indication: BLOOD PRESSURE MEASUREMENT
     Dosage: 4 GTT, QD
     Route: 048
  6. PEGINTRON [Suspect]
     Active Substance: PEGINTERFERON ALFA-2B
     Indication: INTRACRANIAL GERM CELL TUMOUR
     Dosage: 53 MICROGRAM, SINGLE DOSE.
     Route: 058
     Dates: start: 20130107
  7. DEXAMETHASONE. [Concomitant]
     Active Substance: DEXAMETHASONE
     Dosage: 4 MG, UNK
     Route: 048
  8. PEGINTRON [Suspect]
     Active Substance: PEGINTERFERON ALFA-2B
     Indication: BRAIN TERATOMA
  9. PANTOPRAZOLE [Concomitant]
     Active Substance: PANTOPRAZOLE SODIUM
     Dosage: 20 MG, QD
     Route: 048
  10. MIRALAX [Concomitant]
     Active Substance: POLYETHYLENE GLYCOL 3350
     Dosage: 8.5 G, QD
     Route: 048
  11. SENNA [Concomitant]
     Active Substance: SENNA LEAF\SENNOSIDES\SENNOSIDES A AND B
     Dosage: 8.6 MG, QD
     Route: 048
  12. NEUTRA-PHOS K [Concomitant]
     Dosage: 4 GTT, QD
     Route: 048
  13. TRIMETOPRIM-SULFA [Concomitant]
     Dosage: 1 DF, QD
     Route: 048

REACTIONS (5)
  - Pneumonia [Recovered/Resolved]
  - Respiratory distress [Recovered/Resolved]
  - Wheezing [Recovered/Resolved]
  - Off label use [Unknown]
  - Pyrexia [Recovered/Resolved]

NARRATIVE: CASE EVENT DATE: 201301
